FAERS Safety Report 4443346-3 (Version None)
Quarter: 2004Q3

REPORT INFORMATION
  Report Type: 
  Country: None (occurrence: None)
  Receive Date: 20040901
  Receipt Date: 20040819
  Transmission Date: 20050211
  Serious: Yes (Hospitalization)
  Sender: FDA-Public Use
  Company Number: 2004230078US

PATIENT
  Sex: Male

DRUGS (1)
  1. BEXTRA [Suspect]
     Indication: HEADACHE
     Dosage: PRN
     Dates: start: 20030501

REACTIONS (2)
  - MENINGIOMA BENIGN [None]
  - UPPER LIMB FRACTURE [None]
